FAERS Safety Report 17438298 (Version 1)
Quarter: 2020Q1

REPORT INFORMATION
  Report Type: Spontaneous
  Country: US (occurrence: US)
  Receive Date: 20200220
  Receipt Date: 20200220
  Transmission Date: 20200409
  Serious: No
  Sender: FDA-Public Use
  Company Number: US-GLAXOSMITHKLINE-US2020024820

PATIENT
  Age: 69 Year
  Sex: Female

DRUGS (5)
  1. EXCEDRIN MIGRAINE [Suspect]
     Active Substance: ACETAMINOPHEN\ASPIRIN\CAFFEINE
     Indication: MIGRAINE
     Dosage: UNK
  2. EXCEDRIN MIGRAINE [Suspect]
     Active Substance: ACETAMINOPHEN\ASPIRIN\CAFFEINE
     Indication: MIGRAINE
     Dosage: UNK
  3. EXCEDRIN MIGRAINE [Interacting]
     Active Substance: ACETAMINOPHEN\ASPIRIN\CAFFEINE
     Indication: SCIATICA
  4. EXCEDRIN MIGRAINE [Suspect]
     Active Substance: ACETAMINOPHEN\ASPIRIN\CAFFEINE
     Indication: SCIATICA
  5. TYLENOL [Interacting]
     Active Substance: ACETAMINOPHEN
     Indication: BACK PAIN
     Dosage: UNK

REACTIONS (8)
  - Contraindicated product prescribed [Unknown]
  - Product use in unapproved indication [Unknown]
  - Incorrect dose administered [Unknown]
  - Labelled drug-drug interaction medication error [Unknown]
  - Drug effective for unapproved indication [Unknown]
  - Inappropriate schedule of product administration [Unknown]
  - Contraindicated product administered [Unknown]
  - Therapeutic response unexpected [Unknown]
